FAERS Safety Report 24567998 (Version 1)
Quarter: 2024Q4

REPORT INFORMATION
  Report Type: Spontaneous
  Country: GB (occurrence: GB)
  Receive Date: 20241031
  Receipt Date: 20241031
  Transmission Date: 20250115
  Serious: Yes (Other)
  Sender: ORGANON
  Company Number: None

PATIENT
  Age: 34 Year
  Sex: Female
  Weight: 71 kg

DRUGS (1)
  1. BETAMETHASONE DIPROPIONATE [Suspect]
     Active Substance: BETAMETHASONE DIPROPIONATE
     Indication: Dermatitis
     Dosage: 3X A DAY ON AFFECTED AREA
     Dates: start: 20241026

REACTIONS (2)
  - Formication [Not Recovered/Not Resolved]
  - Pruritus [Not Recovered/Not Resolved]

NARRATIVE: CASE EVENT DATE: 20241026
